FAERS Safety Report 23308189 (Version 2)
Quarter: 2023Q4

REPORT INFORMATION
  Report Type: Spontaneous
  Country: FR (occurrence: FR)
  Receive Date: 20231218
  Receipt Date: 20231227
  Transmission Date: 20240110
  Serious: Yes (Other)
  Sender: FDA-Public Use
  Company Number: FR-BRISTOL-MYERS SQUIBB COMPANY-2023-182736

PATIENT
  Age: 49 Year
  Sex: Male

DRUGS (2)
  1. ELIQUIS [Suspect]
     Active Substance: APIXABAN
     Indication: Renal infarct
     Dates: start: 20231201
  2. AZATHIOPRINE [Concomitant]
     Active Substance: AZATHIOPRINE
     Indication: Alopecia

REACTIONS (5)
  - Renal artery dissection [Unknown]
  - Off label use [Unknown]
  - Vasculitis [Unknown]
  - Abnormal behaviour [Unknown]
  - Renal artery thrombosis [Unknown]
